FAERS Safety Report 5095506-9 (Version None)
Quarter: 2006Q3

REPORT INFORMATION
  Report Type: 
  Country: None (occurrence: None)
  Receive Date: 20060901
  Receipt Date: 20060901
  Transmission Date: 20061208
  Serious: Yes (Life-Threatening)
  Sender: FDA-Public Use
  Company Number: None

PATIENT
  Age: 17 Year
  Sex: Male
  Weight: 21.3191 kg

DRUGS (2)
  1. TEQUIN [Suspect]
     Indication: NEPHROLITHIASIS
     Dosage: 400 MG QD /1 DOSE IV
     Route: 042
     Dates: start: 20060824
  2. TEQUIN [Suspect]
     Indication: URINARY TRACT INFECTION
     Dosage: 400 MG QD /1 DOSE IV
     Route: 042
     Dates: start: 20060824

REACTIONS (1)
  - HYPOGLYCAEMIC SEIZURE [None]
